FAERS Safety Report 25987108 (Version 1)
Quarter: 2025Q4

REPORT INFORMATION
  Report Type: Spontaneous
  Country: EU (occurrence: EU)
  Receive Date: 20251103
  Receipt Date: 20251103
  Transmission Date: 20260117
  Serious: Yes (Life-Threatening, Hospitalization, Other)
  Sender: ACCORD
  Company Number: EU-Accord-510495

PATIENT
  Age: 72 Year
  Sex: Female

DRUGS (2)
  1. MITOMYCIN [Suspect]
     Active Substance: MITOMYCIN
     Indication: Hyperthermic chemotherapy
     Dosage: (20 MG/M2 FOR 60 MIN AND 10 MG/M2 FOR 30 MIN
     Route: 033
  2. MITOMYCIN [Suspect]
     Active Substance: MITOMYCIN
     Indication: Hyperthermic chemotherapy
     Dosage: (20 MG/M2 FOR 60 MIN AND 10 MG/M2 FOR 30 MIN
     Route: 033

REACTIONS (4)
  - Acute respiratory distress syndrome [Recovered/Resolved]
  - Respiratory failure [Recovered/Resolved]
  - Pancytopenia [Recovered/Resolved]
  - Off label use [Unknown]
